FAERS Safety Report 23289800 (Version 2)
Quarter: 2024Q1

REPORT INFORMATION
  Report Type: Spontaneous
  Country: US (occurrence: US)
  Receive Date: 20231212
  Receipt Date: 20240125
  Transmission Date: 20240409
  Serious: No
  Sender: FDA-Public Use
  Company Number: US-PFIZER INC-202300429015

PATIENT
  Age: 71 Year
  Sex: Female

DRUGS (5)
  1. PAXLOVID [Suspect]
     Active Substance: NIRMATRELVIR\RITONAVIR
     Indication: COVID-19 treatment
     Dosage: LAST DOSE TAKEN AT 8:00 A.M.
     Dates: start: 20231119, end: 20231124
  2. OLMESARTAN [Concomitant]
     Active Substance: OLMESARTAN
  3. ATORVASTATIN [Concomitant]
     Active Substance: ATORVASTATIN
  4. TIMOLOL [Concomitant]
     Active Substance: TIMOLOL
  5. LUMIGAN [Concomitant]
     Active Substance: BIMATOPROST

REACTIONS (2)
  - COVID-19 [Not Recovered/Not Resolved]
  - Disease recurrence [Not Recovered/Not Resolved]

NARRATIVE: CASE EVENT DATE: 20231128
